FAERS Safety Report 19473674 (Version 3)
Quarter: 2021Q3

REPORT INFORMATION
  Report Type: Report from Study
  Country: US (occurrence: US)
  Receive Date: 20210629
  Receipt Date: 20210903
  Transmission Date: 20211014
  Serious: Yes (Other)
  Sender: FDA-Public Use
  Company Number: US-BAYER-2021-154330

PATIENT
  Age: 26 Year
  Sex: Male

DRUGS (2)
  1. VITRAKVI [Suspect]
     Active Substance: LAROTRECTINIB
     Indication: GLIOBLASTOMA
  2. VITRAKVI [Suspect]
     Active Substance: LAROTRECTINIB
     Indication: ENDOCRINE NEOPLASM
     Dosage: 100 MG, BID
     Dates: start: 20210526

REACTIONS (12)
  - Haematochezia [None]
  - Fatigue [Not Recovered/Not Resolved]
  - Amnesia [Not Recovered/Not Resolved]
  - Decreased appetite [Not Recovered/Not Resolved]
  - Weight decreased [Recovering/Resolving]
  - Nausea [Recovered/Resolved]
  - Vomiting [Not Recovered/Not Resolved]
  - Depressed mood [Not Recovered/Not Resolved]
  - Glioblastoma [Not Recovered/Not Resolved]
  - Gastrooesophageal reflux disease [Not Recovered/Not Resolved]
  - Food refusal [Recovering/Resolving]
  - Neuropathy peripheral [Not Recovered/Not Resolved]

NARRATIVE: CASE EVENT DATE: 202108
